FAERS Safety Report 22306667 (Version 1)
Quarter: 2023Q2

REPORT INFORMATION
  Report Type: Spontaneous
  Country: GR (occurrence: None)
  Receive Date: 20230511
  Receipt Date: 20230511
  Transmission Date: 20230722
  Serious: Yes (Other)
  Sender: FDA-Public Use
  Company Number: GR-MYLANLABS-2023M1033408

PATIENT
  Age: 68 Year
  Sex: Male

DRUGS (4)
  1. STALEVO [Suspect]
     Active Substance: CARBIDOPA\ENTACAPONE\LEVODOPA
     Indication: Parkinson^s disease
     Dosage: 6 DOSAGE FORM, QD (7 AM, 10 AM, 1 PM, 4 PM, 7 PM AND 10PM (6 IN TOTAL DAILY).
  2. LYRICA [Suspect]
     Active Substance: PREGABALIN
     Indication: Sleep disorder
     Dosage: STRENGTH: 75MG,1 DOSAGE FORM, QD (1 CAPS EVERY NIGHT)
     Dates: start: 202303
  3. LYRICA [Suspect]
     Active Substance: PREGABALIN
     Dosage: 2 DOSAGE FORM, QD (2 CAPS EVERY NIGHT)
     Dates: start: 202303
  4. LYRICA [Suspect]
     Active Substance: PREGABALIN
     Dosage: 2 LYRICA 50MG CAPSULES (1 IN THE MORNING, 1 AT NIGHT)

REACTIONS (4)
  - Hallucination [Recovered/Resolved]
  - Gait disturbance [Recovered/Resolved]
  - Somnolence [Recovered/Resolved]
  - Hypertension [Recovered/Resolved]

NARRATIVE: CASE EVENT DATE: 20230301
